FAERS Safety Report 8918428 (Version 2)
Quarter: 2013Q3

REPORT INFORMATION
  Report Type: Spontaneous
  Country: US (occurrence: US)
  Receive Date: 20121120
  Receipt Date: 20130830
  Transmission Date: 20140515
  Serious: No
  Sender: FDA-Public Use
  Company Number: US-ASTRAZENECA-2012SE26908

PATIENT
  Age: 48 Year
  Sex: Male
  Weight: 92.1 kg

DRUGS (4)
  1. NEXIUM [Suspect]
     Indication: DYSPEPSIA
     Route: 048
     Dates: start: 2011, end: 201307
  2. LOPID [Concomitant]
     Indication: BLOOD CHOLESTEROL INCREASED
  3. PRAVASTATIN [Concomitant]
     Indication: BLOOD CHOLESTEROL INCREASED
  4. CELEXA [Concomitant]
     Indication: DEPRESSION

REACTIONS (4)
  - Adverse event [Unknown]
  - Diabetes mellitus [Not Recovered/Not Resolved]
  - Glycosylated haemoglobin decreased [Unknown]
  - Drug dose omission [Not Recovered/Not Resolved]
